FAERS Safety Report 11863477 (Version 3)
Quarter: 2016Q2

REPORT INFORMATION
  Report Type: Spontaneous
  Country: US (occurrence: US)
  Receive Date: 20151223
  Receipt Date: 20160413
  Transmission Date: 20160815
  Serious: Yes (Hospitalization, Other)
  Sender: FDA-Public Use
  Company Number: US-BAYER-2015-493481

PATIENT
  Age: 28 Year
  Sex: Female
  Weight: 85.71 kg

DRUGS (4)
  1. IBUPROFEN. [Concomitant]
     Active Substance: IBUPROFEN
     Dosage: UNK
     Dates: start: 2005
  2. PRENATAL VITAMINS [Concomitant]
     Active Substance: VITAMINS
  3. IRON SUPPLEMENT [Concomitant]
     Active Substance: IRON
  4. MIRENA [Suspect]
     Active Substance: LEVONORGESTREL
     Indication: CONTRACEPTION
     Dosage: 20 MCG/24HR, CONT
     Route: 015
     Dates: start: 20100211, end: 20140820

REACTIONS (9)
  - Activities of daily living impaired [None]
  - Device issue [None]
  - Device dislocation [None]
  - Drug ineffective [None]
  - Pregnancy with contraceptive device [None]
  - Medical device pain [None]
  - High risk pregnancy [None]
  - Device dislocation [None]
  - Fear [None]

NARRATIVE: CASE EVENT DATE: 20130708
